FAERS Safety Report 23390075 (Version 3)
Quarter: 2024Q1

REPORT INFORMATION
  Report Type: Spontaneous
  Country: JP (occurrence: JP)
  Receive Date: 20240111
  Receipt Date: 20240217
  Transmission Date: 20240410
  Serious: Yes (Other)
  Sender: FDA-Public Use
  Company Number: JP-ABBVIE-5580468

PATIENT

DRUGS (1)
  1. RINVOQ [Suspect]
     Active Substance: UPADACITINIB
     Indication: Crohn^s disease
     Dosage: FORM STRENGTH: 45 MILIGRAM
     Route: 048
     Dates: start: 20240105

REACTIONS (3)
  - Cerebral infarction [Unknown]
  - Thrombosis [Unknown]
  - Septic shock [Unknown]

NARRATIVE: CASE EVENT DATE: 20240101
